FAERS Safety Report 25709658 (Version 1)
Quarter: 2025Q3

REPORT INFORMATION
  Report Type: Spontaneous
  Country: US (occurrence: None)
  Receive Date: 20250820
  Receipt Date: 20250820
  Transmission Date: 20251021
  Serious: Yes (Life-Threatening, Disabling, Other)
  Sender: FDA-CTU
  Company Number: None

PATIENT
  Age: 76 Year
  Sex: Female
  Weight: 67.5 kg

DRUGS (2)
  1. LEVOTHYROXINE SODIUM [Suspect]
     Active Substance: LEVOTHYROXINE SODIUM
     Indication: Hypothyroidism
     Dosage: DAILY ORAL ?
     Route: 048
     Dates: start: 20020601, end: 20060601
  2. CYTOMEL [Suspect]
     Active Substance: LIOTHYRONINE SODIUM

REACTIONS (3)
  - Therapeutic response changed [None]
  - Treatment failure [None]
  - Product prescribing issue [None]

NARRATIVE: CASE EVENT DATE: 20020601
